FAERS Safety Report 7233064-0 (Version None)
Quarter: 2011Q1

REPORT INFORMATION
  Report Type: 
  Country: None (occurrence: None)
  Receive Date: 20110119
  Receipt Date: 20110110
  Transmission Date: 20110831
  Serious: Yes (Hospitalization)
  Sender: FDA-Public Use
  Company Number: IT-ASTRAZENECA-2011SE01957

PATIENT
  Age: 18103 Day
  Sex: Female

DRUGS (3)
  1. ZYPREXA [Concomitant]
     Indication: DEPRESSION
     Route: 048
  2. TRIATEC [Concomitant]
     Indication: HYPERTENSION
     Route: 048
  3. SYMBICORT [Suspect]
     Indication: ASTHMA
     Dosage: 160/4.5 UG AS REQUIRED
     Route: 055

REACTIONS (2)
  - ASTHMA [None]
  - BRONCHOPNEUMONIA [None]
